FAERS Safety Report 7867237-0 (Version None)
Quarter: 2011Q4

REPORT INFORMATION
  Report Type: 
  Country: None (occurrence: None)
  Receive Date: 20111028
  Receipt Date: 20111018
  Transmission Date: 20120403
  Serious: Yes (Other)
  Sender: FDA-Public Use
  Company Number: CN-GLAXOSMITHKLINE-B0759071A

PATIENT
  Age: 65 Year

DRUGS (2)
  1. CEFTAZIDIME [Suspect]
     Route: 042
  2. WINE [Concomitant]

REACTIONS (1)
  - SHOCK [None]
